FAERS Safety Report 9037022 (Version 1)
Quarter: 2013Q1

REPORT INFORMATION
  Report Type: Spontaneous
  Country: BR (occurrence: None)
  Receive Date: 20130115
  Receipt Date: 20130115
  Transmission Date: 20140127
  Serious: Yes (Hospitalization)
  Sender: FDA-Public Use
  Company Number: DSU-2013-00137

PATIENT
  Age: 45 Year
  Sex: Female

DRUGS (1)
  1. OLMETEC [Suspect]
     Indication: HYPERTENSION
     Dosage: 40 MG (20 MG, BID), PER ORAL
     Route: 048
     Dates: start: 20121103

REACTIONS (1)
  - Breast cancer female [None]
